FAERS Safety Report 5522565-9 (Version None)
Quarter: 2007Q4

REPORT INFORMATION
  Report Type: 
  Country: None (occurrence: None)
  Receive Date: 20071120
  Receipt Date: 20071108
  Transmission Date: 20080405
  Serious: Yes (Other)
  Sender: FDA-Public Use
  Company Number: CA-PFIZER INC-2007086409

PATIENT
  Age: 64 Year
  Sex: Female

DRUGS (13)
  1. LYRICA [Suspect]
     Indication: SJOGREN'S SYNDROME
     Route: 048
  2. CIPROFLOXACIN [Concomitant]
     Indication: BLADDER DISORDER
     Route: 048
  3. PLAQUENIL [Concomitant]
     Route: 048
  4. ALL OTHER THERAPEUTIC PRODUCTS [Concomitant]
  5. ELTROXIN [Concomitant]
     Route: 048
  6. MORPHINE [Concomitant]
     Route: 048
  7. PREDNISOLONE [Concomitant]
     Route: 048
  8. SALMON OIL [Concomitant]
  9. GENERAL NUTRIENTS [Concomitant]
     Route: 048
  10. FOLIC ACID [Concomitant]
     Route: 048
  11. VITAMIN CAP [Concomitant]
     Route: 048
  12. ATIVAN [Concomitant]
  13. DILAUDID [Concomitant]
     Route: 048

REACTIONS (9)
  - DEPRESSED MOOD [None]
  - DIARRHOEA [None]
  - EUPHORIC MOOD [None]
  - GAIT DISTURBANCE [None]
  - MALAISE [None]
  - MOBILITY DECREASED [None]
  - MUSCLE SPASMS [None]
  - PAIN IN EXTREMITY [None]
  - PRE-EXISTING CONDITION IMPROVED [None]
